FAERS Safety Report 6275413-6 (Version None)
Quarter: 2009Q3

REPORT INFORMATION
  Report Type: 
  Country: None (occurrence: None)
  Receive Date: 20090721
  Receipt Date: 20090715
  Transmission Date: 20100115
  Serious: Yes (Death, Life-Threatening, Hospitalization)
  Sender: FDA-Public Use
  Company Number: ZA-JNJFOC-20090700597

PATIENT
  Sex: Female
  Weight: 76 kg

DRUGS (2)
  1. REVELLEX [Suspect]
     Indication: RHEUMATOID ARTHRITIS
     Dosage: 3 DOSES
     Route: 042
  2. METHOTREXATE [Suspect]
     Indication: DRUG USE FOR UNKNOWN INDICATION
     Dosage: HAS BEEN ON FOR A NUMBER OF YEARS

REACTIONS (4)
  - LUNG INFECTION PSEUDOMONAL [None]
  - PNEUMONITIS [None]
  - PULMONARY EMBOLISM [None]
  - RASH [None]
